FAERS Safety Report 7383072-4 (Version None)
Quarter: 2011Q1

REPORT INFORMATION
  Report Type: 
  Country: None (occurrence: None)
  Receive Date: 20110330
  Receipt Date: 20110327
  Transmission Date: 20110831
  Serious: No
  Sender: FDA-Public Use
  Company Number: US-PFIZER INC-2010047769

PATIENT
  Sex: Female
  Weight: 53.061 kg

DRUGS (3)
  1. CHANTIX [Suspect]
     Dosage: UNK
  2. CHANTIX [Suspect]
     Dosage: 0.5 MG, 1X/DAY
     Dates: start: 20100410
  3. CHANTIX [Suspect]
     Dosage: 0.5 MG, 1X/DAY
     Dates: start: 20070101

REACTIONS (12)
  - INSOMNIA [None]
  - EMOTIONAL DISORDER [None]
  - DECREASED APPETITE [None]
  - ABNORMAL DREAMS [None]
  - DIARRHOEA [None]
  - FATIGUE [None]
  - POLLAKIURIA [None]
  - ABDOMINAL DISCOMFORT [None]
  - MIDDLE INSOMNIA [None]
  - SOMNOLENCE [None]
  - HYPERSENSITIVITY [None]
  - DEPRESSION [None]
